FAERS Safety Report 17651436 (Version 2)
Quarter: 2020Q2

REPORT INFORMATION
  Report Type: Spontaneous
  Country: DE (occurrence: DE)
  Receive Date: 20200409
  Receipt Date: 20200430
  Transmission Date: 20200713
  Serious: Yes (Death, Life-Threatening, Hospitalization, Other)
  Sender: FDA-Public Use
  Company Number: DE-TORRENT-00017143

PATIENT
  Sex: Female
  Weight: 52 kg

DRUGS (24)
  1. MORPHINE [Concomitant]
     Active Substance: MORPHINE
     Indication: PRODUCT USED FOR UNKNOWN INDICATION
     Dosage: UNK UNK, BID 30 RET (1-0-1)
  2. PENTACARINAT [Suspect]
     Active Substance: PENTAMIDINE ISETHIONATE
     Indication: SYSTEMIC LUPUS ERYTHEMATOSUS
     Dosage: UNKNOWN
     Route: 055
     Dates: start: 201904
  3. LAXATAN [Concomitant]
     Indication: PRODUCT USED FOR UNKNOWN INDICATION
     Dosage: UNKNOWN
  4. ANORO [Concomitant]
     Active Substance: UMECLIDINIUM BROMIDE\VILANTEROL TRIFENATATE
     Indication: PRODUCT USED FOR UNKNOWN INDICATION
     Dosage: UNK, 55/221 PUSH
     Route: 055
  5. DETRUSITOL [Suspect]
     Active Substance: TOLTERODINE TARTRATE
     Indication: SYSTEMIC LUPUS ERYTHEMATOSUS
     Dosage: UNKNOWN
  6. ISDN [Concomitant]
     Indication: PRODUCT USED FOR UNKNOWN INDICATION
     Dosage: UNK UNK, BID20 RET (1-1-0)
  7. FLUVASTATIN [Suspect]
     Active Substance: FLUVASTATIN SODIUM
     Indication: SYSTEMIC LUPUS ERYTHEMATOSUS
     Dosage: UNK UNK, QD 20 (0-0-1)
  8. LEVOTHYROXINE. [Suspect]
     Active Substance: LEVOTHYROXINE
     Indication: SYSTEMIC LUPUS ERYTHEMATOSUS
     Dosage: UNK
  9. MOLSIDOMIN [Suspect]
     Active Substance: MOLSIDOMINE
     Indication: SYSTEMIC LUPUS ERYTHEMATOSUS
     Dosage: UNK UNK, QD 8 RET (0-0-1)
  10. SEVREDOL [Suspect]
     Active Substance: MORPHINE
     Indication: SYSTEMIC LUPUS ERYTHEMATOSUS
     Dosage: UNK, 20 TO S5X/D
  11. VALSARTAN. [Suspect]
     Active Substance: VALSARTAN
     Indication: SYSTEMIC LUPUS ERYTHEMATOSUS
     Dosage: UNK UNK, BID 160 (1-0-1)
  12. QUENSYL [Concomitant]
     Active Substance: HYDROXYCHLOROQUINE
     Indication: PRODUCT USED FOR UNKNOWN INDICATION
     Dosage: 200 MG
     Dates: start: 1994, end: 1997
  13. DULOXETINE. [Concomitant]
     Active Substance: DULOXETINE
     Indication: PRODUCT USED FOR UNKNOWN INDICATION
     Dosage: UNK UNK, QD 30 (1-0-0)
  14. PREDNISOLONE. [Suspect]
     Active Substance: PREDNISOLONE
     Indication: SYSTEMIC LUPUS ERYTHEMATOSUS
     Dosage: 5 MG, QD
     Dates: start: 1988
  15. MCP [Concomitant]
     Active Substance: METOCLOPRAMIDE HYDROCHLORIDE
     Indication: PRODUCT USED FOR UNKNOWN INDICATION
     Dosage: UNK UNK, TID 10
  16. ACICLOVIR [Suspect]
     Active Substance: ACYCLOVIR
     Indication: SYSTEMIC LUPUS ERYTHEMATOSUS
     Dosage: 400 MG, TID
  17. AZATHIOPRINE. [Suspect]
     Active Substance: AZATHIOPRINE
     Indication: WHITE BLOOD CELL COUNT DECREASED
     Dosage: UNKNOWN
     Dates: start: 1997, end: 2008
  18. L-THYROX [Concomitant]
     Active Substance: LEVOTHYROXINE SODIUM
     Indication: PRODUCT USED FOR UNKNOWN INDICATION
     Dosage: QD 50 (1-0-0)
  19. ELIQUIS [Suspect]
     Active Substance: APIXABAN
     Indication: SYSTEMIC LUPUS ERYTHEMATOSUS
     Dosage: 2.5MG
  20. EZETROL [Concomitant]
     Active Substance: EZETIMIBE
     Indication: PRODUCT USED FOR UNKNOWN INDICATION
     Dosage: UNK UNK, QD 10 (0-0-1)
  21. SAB SIMPLEX [Concomitant]
     Indication: PRODUCT USED FOR UNKNOWN INDICATION
     Dosage: UNK UNK, QD 30 (1-0-0)
  22. BENLYSTA [Suspect]
     Active Substance: BELIMUMAB
     Indication: SYSTEMIC LUPUS ERYTHEMATOSUS
     Dosage: 200 UNK
     Route: 058
     Dates: start: 201708, end: 201904
  23. DEKRISTOL [Concomitant]
     Active Substance: CHOLECALCIFEROL
     Indication: PRODUCT USED FOR UNKNOWN INDICATION
     Dosage: UNK UNK, WE, 20000
  24. BAYOTENSIN [Concomitant]
     Active Substance: NITRENDIPINE
     Indication: PRODUCT USED FOR UNKNOWN INDICATION
     Dosage: UNKNOWN

REACTIONS (30)
  - Intentional product use issue [Unknown]
  - Leukopenia [Unknown]
  - Drug hypersensitivity [Unknown]
  - Antiphospholipid syndrome [Unknown]
  - Erysipelas [Unknown]
  - Sepsis [Fatal]
  - Gastritis haemorrhagic [Unknown]
  - Systemic lupus erythematosus [Unknown]
  - Lymphopenia [Fatal]
  - Urinary tract infection [Unknown]
  - Coombs positive haemolytic anaemia [Unknown]
  - Hypertension [Unknown]
  - Gastrooesophageal reflux disease [Unknown]
  - Pneumocystis jirovecii pneumonia [Fatal]
  - Skin disorder [Unknown]
  - Anxiety disorder [Unknown]
  - Depression [Unknown]
  - Off label use [Unknown]
  - Colitis ulcerative [Unknown]
  - Hypothyroidism [Unknown]
  - Herpes simplex reactivation [Unknown]
  - Pleuritic pain [Unknown]
  - Thrombocytopenia [Unknown]
  - Hyperlipidaemia [Unknown]
  - Pancreatitis acute [Unknown]
  - Peritonitis [Fatal]
  - Fall [Unknown]
  - Antinuclear antibody negative [Unknown]
  - Osteonecrosis [Unknown]
  - Complex regional pain syndrome [Unknown]

NARRATIVE: CASE EVENT DATE: 1990
